FAERS Safety Report 7046878-7 (Version None)
Quarter: 2010Q4

REPORT INFORMATION
  Report Type: 
  Country: None (occurrence: None)
  Receive Date: 20101015
  Receipt Date: 20101001
  Transmission Date: 20110411
  Serious: Yes (Death, Hospitalization, Other)
  Sender: FDA-Public Use
  Company Number: PHEH2008US01388

PATIENT
  Sex: Female
  Weight: 62.585 kg

DRUGS (13)
  1. AREDIA [Suspect]
     Dosage: 90 MG QMO
     Dates: start: 19990101
  2. AREDIA [Suspect]
     Dosage: 90 MG Q3MO
     Dates: end: 20061101
  3. ZOMETA [Suspect]
     Dosage: UNK
     Dates: end: 20060301
  4. FASLODEX [Concomitant]
     Dosage: UNK
     Dates: start: 20021001, end: 20070801
  5. ARIMIDEX [Concomitant]
     Dosage: UNK
     Dates: start: 20070801
  6. FLAGYL [Concomitant]
     Dosage: 500 UNK, UNK
     Route: 048
  7. PENICILLIN ^GRUNENTHAL^ [Concomitant]
     Dosage: 500 MG, UNK
  8. RADIATION [Concomitant]
  9. ATIVAN [Concomitant]
  10. AMOXICILLIN [Concomitant]
     Dosage: 500 MG, UNK
  11. DECADRON [Concomitant]
  12. VALTREX [Concomitant]
     Dosage: 6500 MG, UNK
  13. THALIDOMIDE [Concomitant]
     Dosage: 50 MG, UNK
     Dates: start: 20060203

REACTIONS (25)
  - ANAEMIA [None]
  - ANXIETY [None]
  - ARTERIOSCLEROSIS [None]
  - ASTHMA [None]
  - BONE DISORDER [None]
  - BONE MARROW TRANSPLANT [None]
  - BREAST CANCER METASTATIC [None]
  - DEFORMITY [None]
  - DISABILITY [None]
  - DISEASE PROGRESSION [None]
  - DIVERTICULUM [None]
  - GINGIVAL ABSCESS [None]
  - IMPAIRED HEALING [None]
  - INFECTION [None]
  - INJURY [None]
  - MASS [None]
  - METASTASES TO LIVER [None]
  - OSTEOMYELITIS [None]
  - OSTEONECROSIS OF JAW [None]
  - OSTEOPENIA [None]
  - PAIN [None]
  - PAIN IN JAW [None]
  - RENAL FAILURE CHRONIC [None]
  - SCOLIOSIS [None]
  - SWELLING [None]
